FAERS Safety Report 11259258 (Version 1)
Quarter: 2015Q3

REPORT INFORMATION
  Report Type: Spontaneous
  Country: US (occurrence: None)
  Receive Date: 20150709
  Receipt Date: 20150709
  Transmission Date: 20151125
  Serious: Yes (Other)
  Sender: FDA-Public Use
  Company Number: None

PATIENT
  Age: 88 Year
  Sex: Female

DRUGS (14)
  1. OS CAL [Concomitant]
  2. WARFARIN [Concomitant]
     Active Substance: WARFARIN
  3. TYLENOL [Concomitant]
     Active Substance: ACETAMINOPHEN
  4. ASCORBIC ACID. [Concomitant]
     Active Substance: ASCORBIC ACID
  5. QUESTRAN [Concomitant]
     Active Substance: CHOLESTYRAMINE
  6. LACTOBACILLUS [Concomitant]
     Active Substance: LACTOBACILLUS ACIDOPHILUS
  7. OXYBUTYNIN [Concomitant]
     Active Substance: OXYBUTYNIN
  8. SOTALOL. [Concomitant]
     Active Substance: SOTALOL
  9. VITAMIN D3 [Concomitant]
     Active Substance: CHOLECALCIFEROL
  10. DILTIAZEM HYDROCHLORIDE EXTENDED RELEASE [Concomitant]
     Active Substance: DILTIAZEM HYDROCHLORIDE
  11. GLUCOSAMINE SULFATE [Concomitant]
     Active Substance: GLUCOSAMINE SULFATE
  12. LIALDA [Suspect]
     Active Substance: MESALAMINE
     Indication: INFLAMMATORY BOWEL DISEASE
     Route: 048
  13. PSYLLIUM [Concomitant]
     Active Substance: PLANTAGO SEED
  14. DICLOFENAC [Concomitant]
     Active Substance: DICLOFENAC

REACTIONS (3)
  - Swelling face [None]
  - Product size issue [None]
  - Swollen tongue [None]

NARRATIVE: CASE EVENT DATE: 20150708
